FAERS Safety Report 10590431 (Version 2)
Quarter: 2015Q1

REPORT INFORMATION
  Report Type: Spontaneous
  Country: US (occurrence: US)
  Receive Date: 20141118
  Receipt Date: 20150123
  Transmission Date: 20150720
  Serious: Yes (Hospitalization, Other)
  Sender: FDA-Public Use
  Company Number: US-BAYER-2014-168391

PATIENT
  Age: 28 Year
  Sex: Female

DRUGS (5)
  1. PITOCIN [Concomitant]
     Active Substance: OXYTOCIN
     Dosage: UNK
     Dates: start: 20040228
  2. DOMPERIDONE [Concomitant]
     Active Substance: DOMPERIDONE
     Dosage: 20 MG, EVERY DAY
     Dates: start: 20040323
  3. MIRENA [Suspect]
     Active Substance: LEVONORGESTREL
     Indication: CONTRACEPTION
     Dosage: 20 MCG/24HR, CONT
     Route: 015
     Dates: start: 20040423, end: 20040430
  4. DARVOCET [Concomitant]
     Active Substance: ACETAMINOPHEN\PROPOXYPHENE HYDROCHLORIDE
     Dosage: UNK
     Dates: start: 20040228
  5. MOTRIN [Concomitant]
     Active Substance: IBUPROFEN
     Dosage: UNK
     Dates: start: 20040228

REACTIONS (12)
  - Genital haemorrhage [None]
  - Device defective [None]
  - Injury [None]
  - Emotional distress [None]
  - Device difficult to use [None]
  - Uterine perforation [None]
  - Hydrometra [None]
  - Abdominal pain lower [None]
  - Pain [None]
  - Device dislocation [None]
  - Vulvovaginal pain [None]
  - Abdominal pain [None]

NARRATIVE: CASE EVENT DATE: 200404
